FAERS Safety Report 25174564 (Version 1)
Quarter: 2025Q2

REPORT INFORMATION
  Report Type: Spontaneous
  Country: CN (occurrence: CN)
  Receive Date: 20250408
  Receipt Date: 20250408
  Transmission Date: 20250716
  Serious: Yes (Hospitalization, Other)
  Sender: ASTELLAS
  Company Number: CN-ASTELLAS-2025-AER-019116

PATIENT
  Age: 66 Year
  Sex: Male

DRUGS (8)
  1. TACROLIMUS [Suspect]
     Active Substance: TACROLIMUS
     Indication: Lung transplant
     Route: 048
     Dates: start: 2023, end: 202405
  2. TACROLIMUS [Suspect]
     Active Substance: TACROLIMUS
     Dosage: (EVERY 7 DAY) UNDER THE PLASMA CONCENTRATION ?MONITORING
     Route: 048
     Dates: start: 202405, end: 20240613
  3. TACROLIMUS [Suspect]
     Active Substance: TACROLIMUS
     Route: 048
     Dates: start: 20240613
  4. ISAVUCONAZOLE [Interacting]
     Active Substance: ISAVUCONAZOLE
     Indication: Bronchopulmonary aspergillosis
     Route: 048
     Dates: start: 202404, end: 202405
  5. ISAVUCONAZOLE [Interacting]
     Active Substance: ISAVUCONAZOLE
     Route: 048
     Dates: start: 202405
  6. RITONAVIR [Interacting]
     Active Substance: RITONAVIR
     Indication: Coronavirus infection
     Route: 065
     Dates: start: 20240510, end: 20240612
  7. MYCOPHENOLATE SODIUM [Concomitant]
     Active Substance: MYCOPHENOLATE SODIUM
     Indication: Lung transplant
     Dosage: DELAYED RELEASE
     Route: 048
     Dates: start: 2023
  8. PREDNISONE ACETATE [Concomitant]
     Active Substance: PREDNISONE ACETATE
     Indication: Lung transplant
     Route: 048

REACTIONS (8)
  - Pseudomonas infection [Unknown]
  - Bronchopulmonary aspergillosis [Recovering/Resolving]
  - Interstitial lung disease [Recovering/Resolving]
  - Pseudomonas infection [Unknown]
  - Coronavirus infection [Recovered/Resolved]
  - Off label use [Unknown]
  - Drug interaction [Unknown]
  - Off label use [Unknown]

NARRATIVE: CASE EVENT DATE: 20230101
